FAERS Safety Report 4585435-9 (Version None)
Quarter: 2005Q1

REPORT INFORMATION
  Report Type: 
  Country: None (occurrence: None)
  Receive Date: 20050214
  Receipt Date: 20050203
  Transmission Date: 20050727
  Serious: Yes (Hospitalization)
  Sender: FDA-Public Use
  Company Number: 6012937

PATIENT
  Age: 81 Year
  Sex: Female

DRUGS (6)
  1. CARDENSIEL               (BISOPROLOL) [Suspect]
     Dosage: ORAL (DOSAGE FORMS, 1 IN 1 D)
     Route: 048
     Dates: end: 20040826
  2. RISPERDAL [Suspect]
     Dosage: ORAL (DOSAGE FORMS, 1 IN 1 D)
     Route: 048
     Dates: end: 20040826
  3. SEROPRAM                (CITALOPRAM HYDROBROMIDE) [Suspect]
     Dosage: ORAL (DOSAGE FORMS, 1 IN 1 D)
     Route: 048
     Dates: end: 20040826
  4. EFFEXOR [Suspect]
     Dosage: ORAL (DOSAGE FORMS, 2 IN 1 D)
     Route: 048
     Dates: end: 20040826
  5. DEPAKOTE [Concomitant]
  6. REMINYL [Concomitant]

REACTIONS (4)
  - DRUG INTERACTION [None]
  - FALL [None]
  - HYPOTENSION [None]
  - MALAISE [None]
